FAERS Safety Report 25939492 (Version 1)
Quarter: 2025Q4

REPORT INFORMATION
  Report Type: Spontaneous
  Country: EU (occurrence: EU)
  Receive Date: 20251020
  Receipt Date: 20251020
  Transmission Date: 20260117
  Serious: Yes (Hospitalization, Other)
  Sender: OXFORD PHARMACEUTICALS, LLC
  Company Number: EU-Oxford Pharmaceuticals, LLC-2186904

PATIENT
  Age: 59 Year
  Sex: Male

DRUGS (1)
  1. BACLOFEN [Suspect]
     Active Substance: BACLOFEN
     Indication: Paraparesis

REACTIONS (8)
  - Coma [Recovering/Resolving]
  - Off label use [Unknown]
  - Hyporeflexia [Recovering/Resolving]
  - Areflexia [Recovering/Resolving]
  - Oculocephalogyric reflex absent [Recovering/Resolving]
  - Corneal reflex decreased [Recovering/Resolving]
  - Bradycardia [Recovering/Resolving]
  - Toxicity to various agents [Unknown]
